FAERS Safety Report 25607572 (Version 2)
Quarter: 2025Q3

REPORT INFORMATION
  Report Type: Report from Study
  Country: US (occurrence: US)
  Receive Date: 20250725
  Receipt Date: 20250802
  Transmission Date: 20251020
  Serious: No
  Sender: SANDOZ
  Company Number: US-SANDOZ-SDZ2025US049851

PATIENT
  Age: 5 Year
  Sex: Male

DRUGS (4)
  1. OMNITROPE [Suspect]
     Active Substance: SOMATROPIN
     Indication: Chronic kidney disease
     Dosage: 0.6 MG, QD
     Route: 058
     Dates: start: 20250711, end: 20250721
  2. OMNITROPE [Suspect]
     Active Substance: SOMATROPIN
     Indication: Chronic kidney disease
     Dosage: 0.6 MG, QD
     Route: 058
     Dates: start: 20250711, end: 20250721
  3. OMNITROPE [Suspect]
     Active Substance: SOMATROPIN
     Indication: Bartter^s syndrome
  4. OMNITROPE [Suspect]
     Active Substance: SOMATROPIN
     Indication: Bartter^s syndrome

REACTIONS (2)
  - Injection site pain [Not Recovered/Not Resolved]
  - Off label use [Unknown]

NARRATIVE: CASE EVENT DATE: 20250701
